FAERS Safety Report 5119053-0 (Version None)
Quarter: 2006Q3

REPORT INFORMATION
  Report Type: 
  Country: None (occurrence: None)
  Receive Date: 20060927
  Receipt Date: 20060922
  Transmission Date: 20061208
  Serious: Yes (Death, Other)
  Sender: FDA-Public Use
  Company Number: 163-20785-06090959

PATIENT
  Sex: 0

DRUGS (1)
  1. THALOMID [Suspect]
     Indication: MYELODYSPLASTIC SYNDROME
     Dosage: 50 -1000 MG, QD FOR 28 DAYS, ORAL
     Route: 048
     Dates: start: 19980101

REACTIONS (15)
  - ACUTE MYELOID LEUKAEMIA [None]
  - CONSTIPATION [None]
  - DISEASE PROGRESSION [None]
  - DRUG EFFECT DECREASED [None]
  - DRUG TOXICITY [None]
  - DYSPNOEA [None]
  - FATIGUE [None]
  - HAEMATOCRIT DECREASED [None]
  - HAEMORRHAGE [None]
  - INFECTION [None]
  - MYELODYSPLASTIC SYNDROME [None]
  - MYOCARDIAL INFARCTION [None]
  - NEUROPATHY [None]
  - PLATELET COUNT DECREASED [None]
  - PNEUMONIA [None]
